FAERS Safety Report 9931564 (Version 3)
Quarter: 2015Q4

REPORT INFORMATION
  Report Type: Report from Study
  Country: US (occurrence: US)
  Receive Date: 20140228
  Receipt Date: 20151014
  Transmission Date: 20160305
  Serious: Yes (Hospitalization, Other)
  Sender: FDA-Public Use
  Company Number: US-ROCHE-1356838

PATIENT
  Sex: Female
  Weight: 47.22 kg

DRUGS (17)
  1. FAMOTIDINE. [Concomitant]
     Active Substance: FAMOTIDINE
  2. LEVOTHYROXINE. [Concomitant]
     Active Substance: LEVOTHYROXINE
  3. ALBUTEROL. [Concomitant]
     Active Substance: ALBUTEROL
  4. FERROUS SULFATE [Concomitant]
     Active Substance: FERROUS SULFATE\FERROUS SULFATE, DRIED
  5. COMPAZINE [Concomitant]
     Active Substance: PROCHLORPERAZINE MALEATE
  6. XELODA [Suspect]
     Active Substance: CAPECITABINE
     Dosage: 500 MG X 2 TABLETS. FOR 14 DAYS WITH 7 DAYS REST
     Route: 048
  7. ONDANSETRON HCL [Concomitant]
     Active Substance: ONDANSETRON HYDROCHLORIDE
  8. PEPCID [Concomitant]
     Active Substance: FAMOTIDINE
  9. XELODA [Suspect]
     Active Substance: CAPECITABINE
     Dosage: 3 TABLETS OF 500 MG
     Route: 048
     Dates: start: 20140425
  10. IPRATROPIUM [Concomitant]
     Active Substance: IPRATROPIUM
  11. XELODA [Suspect]
     Active Substance: CAPECITABINE
     Indication: BLADDER CANCER
     Dosage: 1 TAB OF 500MG, 2 TAB OF 150MG?FROM MONDAY TO FRIDAY. OFF ON SATURDAY AND SUNDAY
     Route: 048
  12. NORCO [Concomitant]
     Active Substance: ACETAMINOPHEN\HYDROCODONE BITARTRATE
  13. ATIVAN [Concomitant]
     Active Substance: LORAZEPAM
  14. ASPIRIN. [Concomitant]
     Active Substance: ASPIRIN
  15. DUONEB [Concomitant]
     Active Substance: ALBUTEROL SULFATE\IPRATROPIUM BROMIDE
  16. PROCHLORPERAZINE MALEATE. [Concomitant]
     Active Substance: PROCHLORPERAZINE MALEATE
  17. DOCQLACE [Concomitant]
     Active Substance: DOCUSATE SODIUM

REACTIONS (12)
  - Femoral neck fracture [Unknown]
  - Back pain [Unknown]
  - Cough [Unknown]
  - Decreased appetite [Unknown]
  - Metastases to liver [Unknown]
  - Weight decreased [Unknown]
  - Ureteric cancer [Unknown]
  - Hip arthroplasty [Unknown]
  - Ascites [Unknown]
  - Fall [Unknown]
  - Palmar-plantar erythrodysaesthesia syndrome [Unknown]
  - Abdominal distension [Unknown]
